FAERS Safety Report 21155652 (Version 1)
Quarter: 2022Q3

REPORT INFORMATION
  Report Type: Spontaneous
  Country: US (occurrence: US)
  Receive Date: 20220801
  Receipt Date: 20220801
  Transmission Date: 20221026
  Serious: No
  Sender: FDA-Public Use
  Company Number: US-BRISTOL-MYERS SQUIBB COMPANY-2022-082777

PATIENT
  Age: 78 Year
  Sex: Female
  Weight: 73.4 kg

DRUGS (1)
  1. REVLIMID [Suspect]
     Active Substance: LENALIDOMIDE
     Indication: Product used for unknown indication
     Dosage: 1 CAPSULE DAILY FOR 21 DAYS ON, 7 OFF.
     Route: 048
     Dates: start: 20210115

REACTIONS (1)
  - Diarrhoea [Not Recovered/Not Resolved]
